FAERS Safety Report 25711265 (Version 1)
Quarter: 2025Q3

REPORT INFORMATION
  Report Type: Spontaneous
  Country: US (occurrence: None)
  Receive Date: 20250821
  Receipt Date: 20250821
  Transmission Date: 20251020
  Serious: Yes (Hospitalization)
  Sender: FDA-CTU
  Company Number: None

PATIENT
  Sex: Female

DRUGS (4)
  1. AUGTYRO [Suspect]
     Active Substance: REPOTRECTINIB
     Indication: Lung neoplasm malignant
     Dosage: FREQUENCY : DAILY;?
     Route: 048
     Dates: start: 20250430
  2. AUGTYRO [Suspect]
     Active Substance: REPOTRECTINIB
     Dosage: FREQUENCY : TWICE A DAY;?
     Route: 048
  3. KEPPRA [Concomitant]
     Active Substance: LEVETIRACETAM
  4. XALKORI [Concomitant]
     Active Substance: CRIZOTINIB

REACTIONS (2)
  - Seizure [None]
  - Brain neoplasm [None]
